FAERS Safety Report 19554913 (Version 1)
Quarter: 2021Q3

REPORT INFORMATION
  Report Type: Spontaneous
  Country: US (occurrence: US)
  Receive Date: 20210715
  Receipt Date: 20210715
  Transmission Date: 20211014
  Serious: Yes (Hospitalization, Other)
  Sender: FDA-Public Use
  Company Number: US-LAVIPHARM SA-2113865

PATIENT
  Age: 89 Year
  Sex: Female

DRUGS (3)
  1. HYDRALAZINE [Concomitant]
     Active Substance: HYDRALAZINE HYDROCHLORIDE
  2. CATAPRES?TTS [Suspect]
     Active Substance: CLONIDINE
     Indication: HYPERTENSION
     Dates: end: 20210621
  3. LABETALOL [Concomitant]
     Active Substance: LABETALOL\LABETALOL HYDROCHLORIDE

REACTIONS (6)
  - Urinary tract infection [Unknown]
  - Nausea [Unknown]
  - Incorrect dose administered [Recovered/Resolved]
  - Bradycardia [Recovering/Resolving]
  - Vomiting [Unknown]
  - Hypotension [Recovering/Resolving]

NARRATIVE: CASE EVENT DATE: 20210608
